FAERS Safety Report 6268571-0 (Version None)
Quarter: 2009Q3

REPORT INFORMATION
  Report Type: 
  Country: None (occurrence: None)
  Receive Date: 20090713
  Receipt Date: 20090713
  Transmission Date: 20100115
  Serious: No
  Sender: FDA-Public Use
  Company Number: None

PATIENT
  Age: 60 Year
  Sex: Female
  Weight: 74.8435 kg

DRUGS (2)
  1. ADVAIR DISKUS 100/50 [Suspect]
     Indication: EMPHYSEMA
     Dosage: 1 PUFF 2 X DAILY PO
     Route: 048
  2. ADVAIR DISKUS 100/50 [Suspect]
     Indication: OEDEMA
     Dosage: 1 PUFF 2 X DAILY PO
     Route: 048

REACTIONS (1)
  - DYSPNOEA [None]
